FAERS Safety Report 9523477 (Version 5)
Quarter: 2014Q2

REPORT INFORMATION
  Report Type: Report from Study
  Country: US (occurrence: US)
  Receive Date: 20130913
  Receipt Date: 20140609
  Transmission Date: 20141212
  Serious: Yes (Hospitalization)
  Sender: FDA-Public Use
  Company Number: PHHO2012US018685

PATIENT
  Age: 64 Year
  Sex: Male
  Weight: 125.2 kg

DRUGS (3)
  1. PREDNISONE [Suspect]
     Dosage: UNK
  2. ZYKADIA [Suspect]
     Indication: NON-SMALL CELL LUNG CANCER
     Dosage: 750 MG, QD
     Route: 048
     Dates: start: 20130103, end: 20130115
  3. ADVAIR [Suspect]

REACTIONS (2)
  - Leukocytosis [Recovered/Resolved]
  - Dehydration [Recovered/Resolved]
